FAERS Safety Report 6354164-3 (Version None)
Quarter: 2009Q3

REPORT INFORMATION
  Report Type: 
  Country: None (occurrence: None)
  Receive Date: 20090914
  Receipt Date: 20090901
  Transmission Date: 20100115
  Serious: Yes (Other)
  Sender: FDA-Public Use
  Company Number: BR-ROCHE-640221

PATIENT
  Age: 27 Year
  Sex: Female

DRUGS (3)
  1. ROACUTAN [Suspect]
     Indication: ACNE
     Dosage: DOSE: 10-20 MG
     Route: 048
     Dates: start: 20090301, end: 20090623
  2. VITAMIN A/VITAMIN E [Suspect]
     Indication: DRUG USE FOR UNKNOWN INDICATION
     Route: 048
     Dates: start: 20090501, end: 20090601
  3. GRACIAL [Concomitant]
     Indication: CONTRACEPTION
     Route: 048

REACTIONS (5)
  - AUTONOMIC NERVOUS SYSTEM IMBALANCE [None]
  - DIZZINESS [None]
  - HEADACHE [None]
  - HYPOVITAMINOSIS [None]
  - NAUSEA [None]
